FAERS Safety Report 9742543 (Version 1)
Quarter: 2013Q4

REPORT INFORMATION
  Report Type: Spontaneous
  Country: CA (occurrence: CA)
  Receive Date: 20131210
  Receipt Date: 20131210
  Transmission Date: 20140711
  Serious: Yes (Other)
  Sender: FDA-Public Use
  Company Number: PHHY2013CA141784

PATIENT
  Age: 40 Year
  Sex: 0

DRUGS (8)
  1. CLOZAPINE [Suspect]
     Indication: SCHIZOPHRENIA, PARANOID TYPE
     Dosage: 250 MG, DAILY
  2. CLOZAPINE [Interacting]
     Dosage: 550 MG, DAILY
  3. VALPROIC ACID [Interacting]
     Indication: SCHIZOPHRENIA, PARANOID TYPE
     Dosage: 1500 MG, DAILY
  4. HALOPERIDOL [Interacting]
     Indication: SCHIZOPHRENIA, PARANOID TYPE
     Dosage: 2 MG, DAILY
  5. HALOPERIDOL [Interacting]
     Dosage: 4 MG, DAILY
  6. RISPERIDONE [Interacting]
     Indication: SCHIZOPHRENIA, PARANOID TYPE
     Dosage: 2 MG, DAILY
  7. METHOTRIMEPRAZINE MALEATE [Interacting]
     Indication: SCHIZOPHRENIA, PARANOID TYPE
     Dosage: 35 MG, DAILY
  8. PROCYCLIDINE [Interacting]
     Indication: SCHIZOPHRENIA, PARANOID TYPE
     Dosage: 5 MG, DAILY

REACTIONS (3)
  - Neutropenia [Recovering/Resolving]
  - Drug interaction [Unknown]
  - White blood cell count decreased [Recovering/Resolving]
